FAERS Safety Report 4764629-3 (Version None)
Quarter: 2005Q3

REPORT INFORMATION
  Report Type: 
  Country: None (occurrence: None)
  Receive Date: 20050909
  Receipt Date: 20050711
  Transmission Date: 20060218
  Serious: Yes (Other)
  Sender: FDA-Public Use
  Company Number: BR-GLAXOSMITHKLINE-A0566341A

PATIENT
  Age: 84 Year
  Sex: Male
  Weight: 52 kg

DRUGS (8)
  1. ZENTEL [Suspect]
     Indication: INFECTION PARASITIC
     Dosage: 400MG PER DAY
     Route: 048
     Dates: start: 20050717
  2. UNSPECIFIED MEDICATION [Concomitant]
     Dosage: 5MG PER DAY
     Dates: start: 20040712
  3. PAROXETINE HCL [Concomitant]
     Dates: start: 20040712
  4. BENICAR [Concomitant]
     Dosage: 20MG PER DAY
     Dates: start: 20040712
  5. ASPIRIN [Concomitant]
     Dosage: 325MG PER DAY
  6. SODIUM CHLORIDE [Concomitant]
     Dosage: 25MG TWICE PER DAY
  7. METHIMAZOLE [Concomitant]
     Dosage: 10MG TWICE PER DAY
  8. INSULIN [Concomitant]

REACTIONS (5)
  - AGGRESSION [None]
  - HYPERTHYROIDISM [None]
  - INSOMNIA [None]
  - OEDEMA [None]
  - URINARY RETENTION [None]
